FAERS Safety Report 9817241 (Version 2)
Quarter: 2014Q1

REPORT INFORMATION
  Report Type: Spontaneous
  Country: US (occurrence: US)
  Receive Date: 20140114
  Receipt Date: 20140114
  Transmission Date: 20141002
  Serious: Yes (Hospitalization)
  Sender: FDA-Public Use
  Company Number: US-AMGEN-USASP2013067534

PATIENT
  Age: 57 Year
  Sex: Female

DRUGS (1)
  1. ENBREL [Suspect]
     Indication: PSORIASIS
     Dosage: 25 MG, 2 TIMES/WK
     Route: 065
     Dates: start: 20130830, end: 201309

REACTIONS (3)
  - Hodgkin^s disease [Not Recovered/Not Resolved]
  - Increased tendency to bruise [Recovered/Resolved]
  - Psoriasis [Not Recovered/Not Resolved]
